FAERS Safety Report 13273750 (Version 2)
Quarter: 2017Q1

REPORT INFORMATION
  Report Type: Spontaneous
  Country: US (occurrence: US)
  Receive Date: 20170227
  Receipt Date: 20170309
  Transmission Date: 20170428
  Serious: Yes (Death, Life-Threatening, Hospitalization, Other)
  Sender: FDA-Public Use
  Company Number: US-ALEXION-A201701705

PATIENT
  Sex: Female

DRUGS (1)
  1. SOLIRIS [Suspect]
     Active Substance: ECULIZUMAB
     Indication: HAEMOLYTIC URAEMIC SYNDROME
     Dosage: 1200 MG, Q2W
     Route: 042
     Dates: end: 20170209

REACTIONS (6)
  - Device related infection [Unknown]
  - Platelet count decreased [Not Recovered/Not Resolved]
  - Abscess [Unknown]
  - Blood lactate dehydrogenase increased [Unknown]
  - Infection [Fatal]
  - Post procedural discharge [Unknown]
